FAERS Safety Report 14332620 (Version 1)
Quarter: 2017Q4

REPORT INFORMATION
  Report Type: Spontaneous
  Country: GB (occurrence: GB)
  Receive Date: 20171228
  Receipt Date: 20171228
  Transmission Date: 20180321
  Serious: Yes (Other)
  Sender: FDA-Public Use
  Company Number: GB-JNJFOC-20171233317

PATIENT
  Age: 91 Year
  Sex: Female
  Weight: 44 kg

DRUGS (8)
  1. XARELTO [Suspect]
     Active Substance: RIVAROXABAN
     Indication: DEEP VEIN THROMBOSIS
     Route: 048
  2. CLARITHROMYCIN. [Concomitant]
     Active Substance: CLARITHROMYCIN
     Route: 065
     Dates: start: 20171114, end: 20171121
  3. PARACETAMOL [Concomitant]
     Active Substance: ACETAMINOPHEN
     Dosage: 2 DF, QID(AS NECESSARY)
     Route: 065
     Dates: start: 20170203
  4. CALCIUM CARBONATE. [Concomitant]
     Active Substance: CALCIUM CARBONATE
     Route: 065
     Dates: start: 20170203
  5. LEVOTHYROXINE. [Concomitant]
     Active Substance: LEVOTHYROXINE
     Dosage: QD(EACH MORNING)
     Route: 065
     Dates: start: 20170203
  6. OMEPRAZOLE. [Concomitant]
     Active Substance: OMEPRAZOLE
     Indication: GASTRIC PH DECREASED
     Route: 065
     Dates: start: 20170203
  7. ALENDRONIC ACID [Concomitant]
     Active Substance: ALENDRONIC ACID
     Dosage: 1 DF, OW(ON EMPTY STOMACH, AT LEAST 30 MINU)
     Route: 065
     Dates: start: 20170203, end: 20171206
  8. DONEPEZIL HYDROCHLORIDE. [Concomitant]
     Active Substance: DONEPEZIL HYDROCHLORIDE
     Dosage: 1 DF, QD((AT 6PM))
     Route: 065
     Dates: start: 20170203

REACTIONS (6)
  - Contusion [Unknown]
  - Haemorrhage [Recovered/Resolved]
  - Fall [Unknown]
  - Haematoma [Unknown]
  - Anaemia [Unknown]
  - Pneumonia [Unknown]
